FAERS Safety Report 8514480-3 (Version None)
Quarter: 2012Q3

REPORT INFORMATION
  Report Type: 
  Country: None (occurrence: None)
  Receive Date: 20120717
  Receipt Date: 20120711
  Transmission Date: 20120928
  Serious: Yes (Disabling, Other)
  Sender: FDA-Public Use
  Company Number: GB-PFIZER INC-2012150352

PATIENT
  Age: 57 Year
  Sex: Female
  Weight: 76.2 kg

DRUGS (5)
  1. VARENICLINE TARTRATE [Suspect]
     Indication: SMOKING CESSATION THERAPY
     Dosage: STARTER DOSE
     Route: 048
     Dates: start: 20120522, end: 20120101
  2. ACETAMINOPHEN AND CODEINE PHOSPHATE [Concomitant]
     Indication: PAIN
     Dosage: 30/500 MG; 2 DF, 4X/DAY
     Route: 048
     Dates: start: 20100801
  3. CITALOPRAM [Concomitant]
     Indication: DEPRESSION
     Dosage: 20 MG, 1X/DAY
     Route: 048
  4. TRIMOVATE [Concomitant]
     Dosage: 1 DF, 2X/DAY
     Route: 061
  5. VARENICLINE TARTRATE [Suspect]
     Dosage: 1 MG, 2X/DAY
     Route: 048
     Dates: start: 20120101, end: 20120606

REACTIONS (9)
  - WOUND SECRETION [None]
  - PRURITUS [None]
  - GAIT DISTURBANCE [None]
  - SKIN DISORDER [None]
  - SKIN LESION [None]
  - RASH GENERALISED [None]
  - EXFOLIATIVE RASH [None]
  - SKIN EXFOLIATION [None]
  - PAIN [None]
